FAERS Safety Report 24222760 (Version 1)
Quarter: 2024Q3

REPORT INFORMATION
  Report Type: Spontaneous
  Country: US (occurrence: US)
  Receive Date: 20240819
  Receipt Date: 20240819
  Transmission Date: 20241017
  Serious: Yes (Other)
  Sender: NOVARTIS
  Company Number: US-002147023-NVSC2024US166498

PATIENT
  Sex: Male

DRUGS (2)
  1. TAFINLAR [Suspect]
     Active Substance: DABRAFENIB MESYLATE
     Indication: Metastatic lymphoma
     Dosage: 150 MG, Q12H (EVERY 12 HOURS
     Route: 048
     Dates: start: 202408
  2. MEKINIST [Suspect]
     Active Substance: TRAMETINIB DIMETHYL SULFOXIDE
     Indication: Metastatic lymphoma
     Dosage: 2 MG, QD
     Route: 048
     Dates: start: 202407

REACTIONS (6)
  - Renal impairment [Unknown]
  - Pyrexia [Unknown]
  - Tremor [Unknown]
  - Headache [Unknown]
  - Pain [Unknown]
  - Drug intolerance [Unknown]
